FAERS Safety Report 6118840-X (Version None)
Quarter: 2009Q1

REPORT INFORMATION
  Report Type: 
  Country: None (occurrence: None)
  Receive Date: 20090316
  Receipt Date: 20090312
  Transmission Date: 20090719
  Serious: Yes (Death)
  Sender: FDA-Public Use
  Company Number: FR-BRISTOL-MYERS SQUIBB COMPANY-14495246

PATIENT
  Age: 61 Year
  Sex: Male

DRUGS (7)
  1. ORENCIA [Suspect]
     Indication: POLYARTHRITIS
     Dosage: 750MG,3 VIALS OF 250MG,SIXTH PERFUSION:20JAN09.THRPY:10SEP08,30SEP08,28OCT08,26NOV08,23DEC08,20JAN09
     Route: 042
     Dates: start: 20080910
  2. METHOTREXATE [Concomitant]
     Indication: RHEUMATOID ARTHRITIS
     Route: 048
     Dates: start: 19990101
  3. CORTANCYL [Concomitant]
     Route: 048
     Dates: start: 19850101
  4. FOSAMAX [Concomitant]
     Indication: OSTEOPOROSIS
     Dosage: FOSAMAX 1 TABS
     Route: 048
     Dates: start: 20050101
  5. ACETAMINOPHEN AND CODEINE PHOSPHATE [Concomitant]
     Dosage: EFFERALGAN CODEINE - SCORED EFFERVESCENT TABLETS.
     Route: 048
  6. ZOLTUM [Concomitant]
     Route: 048
  7. SPECIAFOLDINE [Concomitant]

REACTIONS (1)
  - SUDDEN DEATH [None]
